FAERS Safety Report 5889214-1 (Version None)
Quarter: 2008Q3

REPORT INFORMATION
  Report Type: 
  Country: None (occurrence: None)
  Receive Date: 20080917
  Receipt Date: 20080911
  Transmission Date: 20090109
  Serious: Yes (Other)
  Sender: FDA-Public Use
  Company Number: CERZ-1000331

PATIENT
  Age: 37 Year
  Sex: Female
  Weight: 66.2 kg

DRUGS (4)
  1. CEREZYME [Suspect]
     Indication: GAUCHER'S DISEASE
     Dosage: 120 U/KG, Q4W, INTRAVENOUS
     Dates: start: 20001116
  2. CALCIUM (CALCIUM) [Concomitant]
  3. BONIVA [Concomitant]
  4. VITAMIN B (VITAMIN B) [Concomitant]

REACTIONS (6)
  - ABORTION SPONTANEOUS [None]
  - BONE INFARCTION [None]
  - DRUG EXPOSURE DURING PREGNANCY [None]
  - ERYTHEMA INFECTIOSUM [None]
  - PRURITUS [None]
  - URTICARIA [None]
